FAERS Safety Report 18355808 (Version 2)
Quarter: 2020Q4

REPORT INFORMATION
  Report Type: Spontaneous
  Country: IT (occurrence: IT)
  Receive Date: 20201007
  Receipt Date: 20201008
  Transmission Date: 20210114
  Serious: Yes (Hospitalization, Other)
  Sender: FDA-Public Use
  Company Number: IT-SA-2020SA270593

PATIENT

DRUGS (1)
  1. SULIQUA [Suspect]
     Active Substance: INSULIN GLARGINE\LIXISENATIDE
     Indication: TYPE 2 DIABETES MELLITUS
     Dosage: 14 IU, 1 DAY
     Route: 058
     Dates: start: 20190609, end: 20200825

REACTIONS (4)
  - Vomiting [Recovered/Resolved]
  - Hyperinsulinaemic hypoglycaemia [Recovered/Resolved]
  - Malaise [Recovered/Resolved]
  - Cold sweat [Recovered/Resolved]

NARRATIVE: CASE EVENT DATE: 20200825
